FAERS Safety Report 10256006 (Version 1)
Quarter: 2014Q2

REPORT INFORMATION
  Report Type: Spontaneous
  Country: FR (occurrence: FR)
  Receive Date: 20140624
  Receipt Date: 20140624
  Transmission Date: 20141212
  Serious: Yes (Hospitalization, Other)
  Sender: FDA-Public Use
  Company Number: FR-PFIZER INC-2014169698

PATIENT
  Age: 88 Year
  Sex: Female
  Weight: 41 kg

DRUGS (4)
  1. INSPRA [Suspect]
     Dosage: 25 MG, DAILY
     Route: 048
     Dates: end: 20140403
  2. BISOPROLOL [Concomitant]
     Dosage: UNK
  3. PANTOPRAZOLE [Concomitant]
     Dosage: UNK
  4. IMOVANE [Concomitant]
     Dosage: UNK

REACTIONS (2)
  - Hyperkalaemia [Recovered/Resolved]
  - Pneumonia [Unknown]
